FAERS Safety Report 11225051 (Version 1)
Quarter: 2015Q2

REPORT INFORMATION
  Report Type: Spontaneous
  Country: US (occurrence: None)
  Receive Date: 20150625
  Receipt Date: 20150625
  Transmission Date: 20150821
  Serious: No
  Sender: FDA-Public Use
  Company Number: HA15-166-AE

PATIENT
  Age: 71 Year

DRUGS (14)
  1. COQ10 [Concomitant]
     Active Substance: UBIDECARENONE
  2. SULFAMETHOXAZOLE-TRIMETHOPRIM (SMZ) [Suspect]
     Active Substance: SULFAMETHOXAZOLE\TRIMETHOPRIM
     Indication: URINARY TRACT INFECTION
     Route: 048
     Dates: start: 201410, end: 20141005
  3. CENTRUM SILVER [Concomitant]
     Active Substance: VITAMINS
  4. PREDNISONE. [Concomitant]
     Active Substance: PREDNISONE
  5. VALSARTAN. [Concomitant]
     Active Substance: VALSARTAN
  6. IRON [Concomitant]
     Active Substance: IRON
  7. RAPAMUNE [Concomitant]
     Active Substance: SIROLIMUS
  8. GAVISCON [Concomitant]
     Active Substance: ALUMINUM HYDROXIDE\MAGNESIUM CARBONATE
  9. OSCAL [Concomitant]
     Active Substance: CALCIUM CARBONATE
  10. SIMETHICONE [Concomitant]
     Active Substance: DIMETHICONE\SILICON DIOXIDE\SIMETHICONE
  11. MIRALAX [Concomitant]
     Active Substance: POLYETHYLENE GLYCOL 3350
  12. SIMVASTATIN. [Concomitant]
     Active Substance: SIMVASTATIN
  13. ASPIRIN. [Concomitant]
     Active Substance: ASPIRIN
  14. VITAMIN B12 [Concomitant]
     Active Substance: CYANOCOBALAMIN

REACTIONS (8)
  - Renal failure [None]
  - Helicobacter infection [None]
  - Dyspnoea [None]
  - Sinusitis [None]
  - Bronchitis [None]
  - Pancreatitis [None]
  - Blood creatinine increased [None]
  - Dehydration [None]

NARRATIVE: CASE EVENT DATE: 20141004
